FAERS Safety Report 5488237-4 (Version None)
Quarter: 2007Q3

REPORT INFORMATION
  Report Type: 
  Country: None (occurrence: None)
  Receive Date: 20070926
  Receipt Date: 20070815
  Transmission Date: 20080115
  Serious: Yes (Other)
  Sender: FDA-Public Use
  Company Number: HQWYE702220AUG07

PATIENT
  Sex: Male

DRUGS (1)
  1. TORISEL [Suspect]
     Dosage: 25 MG
     Dates: start: 20070815

REACTIONS (1)
  - CHEST DISCOMFORT [None]
